FAERS Safety Report 13004268 (Version 1)
Quarter: 2016Q4

REPORT INFORMATION
  Report Type: Spontaneous
  Country: GB (occurrence: GB)
  Receive Date: 20161206
  Receipt Date: 20161206
  Transmission Date: 20170207
  Serious: Yes (Life-Threatening)
  Sender: FDA-Public Use
  Company Number: GB-ROCHE-1864205

PATIENT
  Age: 69 Year
  Sex: Male
  Weight: 75.6 kg

DRUGS (1)
  1. GAZYVARO [Suspect]
     Active Substance: OBINUTUZUMAB
     Indication: CHRONIC LYMPHOCYTIC LEUKAEMIA
     Dosage: 1000MG. SPLIT DOSE OVER 2 DAYS,100MG DAY 1, 900MG DAY 2.
     Route: 042
     Dates: start: 20161103, end: 20161104

REACTIONS (2)
  - Fluid overload [Recovering/Resolving]
  - Acute myocardial infarction [Recovering/Resolving]

NARRATIVE: CASE EVENT DATE: 20161104
